FAERS Safety Report 17511183 (Version 5)
Quarter: 2022Q2

REPORT INFORMATION
  Report Type: Report from Study
  Country: US (occurrence: US)
  Receive Date: 20200306
  Receipt Date: 20220513
  Transmission Date: 20220720
  Serious: No
  Sender: FDA-Public Use
  Company Number: US-HARMONY BIOSCIENCES-2020HMY00111

PATIENT
  Sex: Male
  Weight: 111.11 kg

DRUGS (13)
  1. WAKIX [Suspect]
     Active Substance: PITOLISANT HYDROCHLORIDE
     Indication: Narcolepsy
     Dosage: 4.45 MG, 1X/DAY FOR 7 DAYS
     Route: 048
     Dates: start: 20200405, end: 2020
  2. WAKIX [Suspect]
     Active Substance: PITOLISANT HYDROCHLORIDE
     Dosage: 4.45 MG, 1X/DAY IN THE MORNING
     Route: 048
     Dates: start: 2020
  3. WAKIX [Suspect]
     Active Substance: PITOLISANT HYDROCHLORIDE
     Indication: Narcolepsy
     Dosage: 17.8 MG, 1X/DAY
     Route: 048
     Dates: start: 20200401, end: 202005
  4. IMITREX [Concomitant]
     Active Substance: SUMATRIPTAN SUCCINATE
  5. IBUPROFEN [Concomitant]
     Active Substance: IBUPROFEN
  6. NAPROXEN [Concomitant]
     Active Substance: NAPROXEN
  7. ASPIRIN [Concomitant]
     Active Substance: ASPIRIN
  8. BENADRYL [Concomitant]
     Active Substance: DIPHENHYDRAMINE HYDROCHLORIDE
  9. WARFARIN SODIUM [Concomitant]
     Active Substance: WARFARIN SODIUM
  10. LOSARTAN POTASSIUM [Concomitant]
     Active Substance: LOSARTAN POTASSIUM
  11. SPIRONOLACTONE [Concomitant]
     Active Substance: SPIRONOLACTONE
  12. CARVEDILOL [Concomitant]
     Active Substance: CARVEDILOL
  13. WARFARIN [Concomitant]
     Active Substance: WARFARIN

REACTIONS (13)
  - Chest discomfort [Recovered/Resolved]
  - Panic attack [Recovered/Resolved]
  - Hyperhidrosis [Recovered/Resolved]
  - Lethargy [Recovering/Resolving]
  - Asthenia [Recovering/Resolving]
  - Decreased interest [Recovered/Resolved]
  - Mood swings [Recovered/Resolved]
  - Therapeutic response unexpected [Unknown]
  - Sleep disorder [Recovering/Resolving]
  - Fatigue [Recovering/Resolving]
  - Anxiety [Recovered/Resolved]
  - Migraine [Recovering/Resolving]
  - Insomnia [Recovering/Resolving]

NARRATIVE: CASE EVENT DATE: 20200101
